FAERS Safety Report 13269253 (Version 13)
Quarter: 2020Q2

REPORT INFORMATION
  Report Type: Report from Study
  Country: GR (occurrence: GR)
  Receive Date: 20170224
  Receipt Date: 20200604
  Transmission Date: 20200713
  Serious: Yes (Hospitalization, Other)
  Sender: FDA-Public Use
  Company Number: GR-SA-2017SA031296

PATIENT

DRUGS (5)
  1. ALEMTUZUMAB [Suspect]
     Active Substance: ALEMTUZUMAB
     Indication: RELAPSING MULTIPLE SCLEROSIS
     Dosage: 12 MG,QD
     Route: 041
     Dates: start: 20170207, end: 20170209
  2. LAMOTRIX [Concomitant]
     Active Substance: LAMOTRIGINE
     Dosage: 300 MG
     Route: 048
     Dates: start: 2010
  3. ALEMTUZUMAB [Suspect]
     Active Substance: ALEMTUZUMAB
     Dosage: 12 MG, QD
     Route: 041
     Dates: start: 20160118, end: 20160122
  4. ESCITALOPRAM [Concomitant]
     Active Substance: ESCITALOPRAM OXALATE
     Dosage: UNK, UNK
     Route: 048
     Dates: start: 201509
  5. XATRAL [ALFUZOSIN HYDROCHLORIDE] [Concomitant]
     Active Substance: ALFUZOSIN
     Dosage: UNK, UNK
     Route: 048
     Dates: start: 2014

REACTIONS (11)
  - C-reactive protein increased [Recovered/Resolved]
  - Pregnancy [Not Recovered/Not Resolved]
  - Dysaesthesia [Recovered/Resolved]
  - Thrombocytopenia [Recovered/Resolved]
  - Neutrophilia [Recovered/Resolved]
  - Hypothyroidism [Not Recovered/Not Resolved]
  - Headache [Recovered/Resolved]
  - Pyrexia [Recovered/Resolved]
  - Pyrexia [Recovered/Resolved]
  - Bradycardia [Recovered/Resolved]
  - Multiple sclerosis relapse [Recovered/Resolved]

NARRATIVE: CASE EVENT DATE: 20170207
